FAERS Safety Report 11400411 (Version 2)
Quarter: 2015Q4

REPORT INFORMATION
  Report Type: Spontaneous
  Country: US (occurrence: US)
  Receive Date: 20150820
  Receipt Date: 20151005
  Transmission Date: 20160304
  Serious: No
  Sender: FDA-Public Use
  Company Number: US-PFIZER INC-2015266835

PATIENT
  Age: 69 Year
  Sex: Female

DRUGS (5)
  1. MUCINEX DM [Suspect]
     Active Substance: DEXTROMETHORPHAN HYDROBROMIDE\GUAIFENESIN
     Dosage: 600 MG, AS NEEDED (EVERY 12 HOURS)
     Route: 048
     Dates: start: 20150613
  2. MUCINEX DM [Suspect]
     Active Substance: DEXTROMETHORPHAN HYDROBROMIDE\GUAIFENESIN
     Dosage: 600 MG, AS NEEDED (EVERY 12 HOURS)
     Route: 048
     Dates: start: 20150709
  3. MUCINEX DM [Suspect]
     Active Substance: DEXTROMETHORPHAN HYDROBROMIDE\GUAIFENESIN
     Dosage: 600 MG, AS NEEDED (EVERY 12 HOURS)
     Route: 048
     Dates: start: 20150722
  4. TESSALON [Suspect]
     Active Substance: BENZONATATE
     Dosage: UNK
  5. MUCINEX DM [Suspect]
     Active Substance: DEXTROMETHORPHAN HYDROBROMIDE\GUAIFENESIN
     Dosage: 600 MG, AS NEEDED (EVERY 12 HOURS)
     Route: 048
     Dates: start: 20150430

REACTIONS (2)
  - Fatigue [Unknown]
  - Asthenia [Unknown]
